FAERS Safety Report 18270104 (Version 1)
Quarter: 2020Q3

REPORT INFORMATION
  Report Type: Report from Study
  Country: CA (occurrence: CA)
  Receive Date: 20200915
  Receipt Date: 20200915
  Transmission Date: 20201103
  Serious: Yes (Life-Threatening, Hospitalization)
  Sender: FDA-Public Use
  Company Number: PHHY2017CA115763

PATIENT
  Age: 57 Year
  Sex: Female

DRUGS (2)
  1. GILENYA [Suspect]
     Active Substance: FINGOLIMOD HYDROCHLORIDE
     Indication: PRODUCT USED FOR UNKNOWN INDICATION
     Dosage: UNK
     Route: 048
     Dates: start: 20170731
  2. GILENYA [Suspect]
     Active Substance: FINGOLIMOD HYDROCHLORIDE
     Dosage: 1 DF, QOD
     Route: 048

REACTIONS (9)
  - Disturbance in attention [Unknown]
  - Pain [Recovering/Resolving]
  - Alopecia [Unknown]
  - Off label use [Unknown]
  - Gastrointestinal disorder [Unknown]
  - Fatigue [Unknown]
  - Depressed mood [Unknown]
  - Accident [Unknown]
  - Eczema [Unknown]

NARRATIVE: CASE EVENT DATE: 20170801
